FAERS Safety Report 21584406 (Version 2)
Quarter: 2022Q4

REPORT INFORMATION
  Report Type: Spontaneous
  Country: IT (occurrence: IT)
  Receive Date: 20221111
  Receipt Date: 20221129
  Transmission Date: 20230113
  Serious: Yes (Other)
  Sender: FDA-Public Use
  Company Number: None

PATIENT
  Age: 53 Year
  Sex: Male

DRUGS (20)
  1. RAMUCIRUMAB [Suspect]
     Active Substance: RAMUCIRUMAB
     Indication: Oesophageal adenocarcinoma
     Dosage: 600 MG, UNKNOWN
     Route: 042
     Dates: start: 20220523
  2. PACLITAXEL [Suspect]
     Active Substance: PACLITAXEL
     Indication: Oesophageal adenocarcinoma
     Dosage: 154 MG, UNKNOWN
     Route: 042
     Dates: start: 20220523
  3. ASPIRIN [Concomitant]
     Active Substance: ASPIRIN
     Indication: Hypertension
     Dosage: 100 MG
  4. ASPIRIN [Concomitant]
     Active Substance: ASPIRIN
     Indication: Angioplasty
  5. ASPIRIN [Concomitant]
     Active Substance: ASPIRIN
     Indication: Coronary artery disease
  6. TENORMIN [Concomitant]
     Active Substance: ATENOLOL
     Indication: Hypertension
     Dosage: 100 MG
  7. TENORMIN [Concomitant]
     Active Substance: ATENOLOL
     Indication: Angioplasty
  8. TENORMIN [Concomitant]
     Active Substance: ATENOLOL
     Indication: Coronary artery disease
  9. MICARDIS [Concomitant]
     Active Substance: TELMISARTAN
     Indication: Hypertension
     Dosage: 80 MG
  10. MICARDIS [Concomitant]
     Active Substance: TELMISARTAN
     Indication: Angioplasty
  11. MICARDIS [Concomitant]
     Active Substance: TELMISARTAN
     Indication: Coronary artery disease
  12. NORVASC [Concomitant]
     Active Substance: AMLODIPINE BESYLATE
     Indication: Hypertension
     Dosage: 5 MG
  13. NORVASC [Concomitant]
     Active Substance: AMLODIPINE BESYLATE
     Indication: Angioplasty
  14. NORVASC [Concomitant]
     Active Substance: AMLODIPINE BESYLATE
     Indication: Coronary artery disease
  15. PANTOPRAZOLE [Concomitant]
     Active Substance: PANTOPRAZOLE
     Indication: Hypertension
     Dosage: 40 MG
  16. PANTOPRAZOLE [Concomitant]
     Active Substance: PANTOPRAZOLE
     Indication: Angioplasty
  17. PANTOPRAZOLE [Concomitant]
     Active Substance: PANTOPRAZOLE
     Indication: Coronary artery disease
  18. COMPUNA [Concomitant]
     Indication: Hypertension
     Dosage: 15 MG (5 + 10MG)
  19. COMPUNA [Concomitant]
     Indication: Angioplasty
  20. COMPUNA [Concomitant]
     Indication: Coronary artery disease

REACTIONS (11)
  - Hyperbilirubinaemia [Recovered/Resolved]
  - Syncope [Recovering/Resolving]
  - Hyperpyrexia [Recovering/Resolving]
  - Thrombocytopenia [Recovered/Resolved]
  - Gastrooesophageal reflux disease [Recovering/Resolving]
  - Dysgeusia [Recovering/Resolving]
  - Mucosal inflammation [Recovering/Resolving]
  - Decreased appetite [Recovering/Resolving]
  - Dysphagia [Recovering/Resolving]
  - Oedema peripheral [Recovered/Resolved]
  - Epistaxis [Recovering/Resolving]

NARRATIVE: CASE EVENT DATE: 20220527
